FAERS Safety Report 8951678 (Version 1)
Quarter: 2012Q4

REPORT INFORMATION
  Report Type: 
  Country: GB (occurrence: GB)
  Receive Date: 20121204
  Receipt Date: 20121204
  Transmission Date: 20130627
  Serious: Yes (Disabling, Other)
  Sender: FDA-Public Use
  Company Number: PHHY2012GB109963

PATIENT
  Age: 57 Year
  Sex: Female
  Weight: 72 kg

DRUGS (3)
  1. INDAPAMIDE [Suspect]
     Indication: HYPERTENSION
     Dosage: 2.5 mg, QD
     Route: 048
     Dates: start: 20121111, end: 20121115
  2. IRBESARTAN [Concomitant]
     Indication: HYPERTENSION
     Dosage: 300 mg, QD
     Route: 048
     Dates: start: 2010
  3. RANITIDINE [Concomitant]
     Indication: DYSPEPSIA
     Dosage: 150 mg, BID
     Route: 048
     Dates: start: 2010

REACTIONS (5)
  - Palpitations [Recovered/Resolved]
  - Dry mouth [Recovered/Resolved]
  - Paraesthesia oral [Recovered/Resolved]
  - Dysgeusia [Recovered/Resolved]
  - Dizziness [Recovered/Resolved]
